FAERS Safety Report 9901106 (Version 1)
Quarter: 2014Q1

REPORT INFORMATION
  Report Type: Spontaneous
  Country: US (occurrence: US)
  Receive Date: 20140217
  Receipt Date: 20140217
  Transmission Date: 20141002
  Serious: No
  Sender: FDA-Public Use
  Company Number: US-PFIZER INC-2014040258

PATIENT
  Sex: Female

DRUGS (7)
  1. PRISTIQ [Suspect]
     Dosage: 50 MG, 1X/DAY
     Dates: start: 201311
  2. PRISTIQ [Suspect]
     Dosage: 100 MG, 1X/DAY
  3. PRISTIQ [Suspect]
     Dosage: 150 MG, 1X/DAY
  4. PRISTIQ [Suspect]
     Dosage: 100 MG, 1X/DAY
  5. PRISTIQ [Suspect]
     Dosage: 50 MG, 1X/DAY
  6. PRISTIQ [Suspect]
     Dosage: 50 MG, 1X/DAY
     Dates: end: 20140210
  7. PRISTIQ [Suspect]
     Dosage: SPLITTING TABLETS AND TAKING 25 MG, UNK

REACTIONS (3)
  - Nightmare [Unknown]
  - Insomnia [Unknown]
  - Intentional drug misuse [Unknown]
